FAERS Safety Report 7555810-9 (Version None)
Quarter: 2011Q2

REPORT INFORMATION
  Report Type: 
  Country: None (occurrence: None)
  Receive Date: 20110618
  Receipt Date: 20110606
  Transmission Date: 20111010
  Serious: Yes (Hospitalization)
  Sender: FDA-Public Use
  Company Number: US-BAYER-2011-048342

PATIENT
  Age: 52 Year
  Sex: Female

DRUGS (10)
  1. LEVOFLOXACIN [Suspect]
     Indication: OSTEOMYELITIS
     Dosage: UNK
     Dates: end: 20110415
  2. CALCIUM CARBONATE [Concomitant]
  3. AVELOX [Suspect]
     Indication: CELLULITIS
  4. FEMARA [Concomitant]
     Indication: BREAST CANCER
     Dosage: DAILY DOSE 25 MG
  5. VITAMIN D [Concomitant]
  6. AVELOX [Suspect]
     Indication: OSTEOMYELITIS
     Dosage: UNK
     Dates: end: 20110415
  7. CHANTIX [Suspect]
     Indication: SMOKING CESSATION THERAPY
     Dosage: 0.5 MG, QD
     Dates: start: 20110513
  8. MULTI-VITAMIN [Concomitant]
  9. LEVOFLOXACIN [Suspect]
     Indication: CELLULITIS
  10. CHANTIX [Suspect]
     Dosage: DOSE NOT REPORTED

REACTIONS (2)
  - PALPITATIONS [None]
  - DIZZINESS [None]
